FAERS Safety Report 17067287 (Version 1)
Quarter: 2019Q4

REPORT INFORMATION
  Report Type: Spontaneous
  Country: US (occurrence: US)
  Receive Date: 20191122
  Receipt Date: 20191122
  Transmission Date: 20200122
  Serious: No
  Sender: FDA-Public Use
  Company Number: US-BIODELIVERY SCIENCES INTERNATIONAL-2019BDSI0416

PATIENT
  Age: 57 Year
  Sex: Female
  Weight: 70.37 kg

DRUGS (2)
  1. IBUPROFEN/HYDROCODONE BITARTRATE [Concomitant]
     Indication: PAIN
     Dosage: 7.5-200MG AS NEED UP TO 4 TIMES DAILY
     Route: 048
  2. BUPRENORPHINE. [Suspect]
     Active Substance: BUPRENORPHINE
     Indication: PAIN
     Route: 002
     Dates: start: 20190507

REACTIONS (4)
  - Chest discomfort [Not Recovered/Not Resolved]
  - Drug ineffective [Not Recovered/Not Resolved]
  - Product solubility abnormal [Unknown]
  - Oral administration complication [Unknown]

NARRATIVE: CASE EVENT DATE: 201905
